FAERS Safety Report 12436785 (Version 2)
Quarter: 2016Q2

REPORT INFORMATION
  Report Type: Spontaneous
  Country: MX (occurrence: MX)
  Receive Date: 20160606
  Receipt Date: 20160608
  Transmission Date: 20160815
  Serious: Yes (Death)
  Sender: FDA-Public Use
  Company Number: MX-HORIZON-ACT-0136-2016

PATIENT
  Age: 5 Year
  Sex: Male

DRUGS (4)
  1. IMUKIN [Suspect]
     Active Substance: INTERFERON GAMMA
     Indication: CHRONIC GRANULOMATOUS DISEASE
  2. VANCOMICIN [Concomitant]
     Indication: PNEUMONIA
     Route: 042
     Dates: start: 20160522, end: 20160522
  3. CEFOTAXAMIA [Concomitant]
     Indication: GASTROENTERITIS
     Route: 042
     Dates: start: 20160518, end: 20160522
  4. CEFEPRIME [Concomitant]
     Indication: PNEUMONIA
     Route: 042
     Dates: start: 20160522, end: 20160522

REACTIONS (4)
  - Pyrexia [Fatal]
  - Diarrhoea [Fatal]
  - Septic shock [Fatal]
  - Periorbital oedema [Fatal]

NARRATIVE: CASE EVENT DATE: 20160508
